FAERS Safety Report 4470784-5 (Version None)
Quarter: 2004Q4

REPORT INFORMATION
  Report Type: 
  Country: None (occurrence: None)
  Receive Date: 20041006
  Receipt Date: 20040924
  Transmission Date: 20050328
  Serious: Yes (Hospitalization)
  Sender: FDA-Public Use
  Company Number: 2004-00820FE

PATIENT
  Age: 40 Year
  Sex: Female

DRUGS (2)
  1. PENTASA [Suspect]
     Indication: PROCTITIS
     Dosage: 2.25 G ORALLY
     Route: 048
     Dates: start: 20040623, end: 20040721
  2. SULFASALAZINE [Suspect]
     Indication: PROCTITIS
     Dosage: 500 MG PER RECTAL
     Route: 054
     Dates: start: 20040623, end: 20040721

REACTIONS (1)
  - INTERSTITIAL LUNG DISEASE [None]
